FAERS Safety Report 15365862 (Version 2)
Quarter: 2018Q3

REPORT INFORMATION
  Report Type: Spontaneous
  Country: US (occurrence: US)
  Receive Date: 20180910
  Receipt Date: 20180912
  Transmission Date: 20181010
  Serious: No
  Sender: FDA-Public Use
  Company Number: US-TEVA-2018-US-952473

PATIENT
  Sex: Female

DRUGS (1)
  1. CLONIDINE. [Suspect]
     Active Substance: CLONIDINE
     Indication: BLOOD PRESSURE MEASUREMENT
     Route: 062
     Dates: start: 2017

REACTIONS (4)
  - Application site pain [Unknown]
  - Application site rash [Unknown]
  - Product adhesion issue [Unknown]
  - Application site pruritus [Unknown]
